FAERS Safety Report 5417925-0 (Version None)
Quarter: 2007Q3

REPORT INFORMATION
  Report Type: 
  Country: None (occurrence: None)
  Receive Date: 20070815
  Receipt Date: 20070803
  Transmission Date: 20080115
  Serious: Yes (Life-Threatening)
  Sender: FDA-Public Use
  Company Number: M7001-00018-SPO-IT

PATIENT
  Age: 60 Year
  Sex: Female

DRUGS (1)
  1. TARGRETIN [Suspect]
     Indication: MYCOSIS FUNGOIDES
     Dosage: 300 MG/M2, ORAL
     Route: 048

REACTIONS (4)
  - BASAL CELL CARCINOMA [None]
  - BLOOD CHOLESTEROL ABNORMAL [None]
  - BLOOD TRIGLYCERIDES ABNORMAL [None]
  - THYROID FUNCTION TEST ABNORMAL [None]
